FAERS Safety Report 15960575 (Version 4)
Quarter: 2025Q3

REPORT INFORMATION
  Report Type: Spontaneous
  Country: EU (occurrence: EU)
  Receive Date: 20190214
  Receipt Date: 20250816
  Transmission Date: 20251020
  Serious: Yes (Life-Threatening, Hospitalization, Other)
  Sender: AUROBINDO
  Company Number: EU-AUROBINDO-AUR-APL-2019-007453

PATIENT
  Age: 64 Year
  Sex: Male

DRUGS (3)
  1. CAPECITABINE [Suspect]
     Active Substance: CAPECITABINE
     Indication: Penis carcinoma stage III
     Route: 065
     Dates: start: 2017
  2. PACLITAXEL [Suspect]
     Active Substance: PACLITAXEL
     Indication: Penis carcinoma stage III
     Route: 065
     Dates: start: 2017
  3. CARBOPLATIN [Suspect]
     Active Substance: CARBOPLATIN
     Indication: Penis carcinoma stage III
     Route: 065
     Dates: start: 2017

REACTIONS (3)
  - Hypervolaemia [Not Recovered/Not Resolved]
  - Hypoxia [Recovered/Resolved]
  - Off label use [Unknown]
